FAERS Safety Report 24693348 (Version 1)
Quarter: 2024Q4

REPORT INFORMATION
  Report Type: Report from Study
  Country: AR (occurrence: AR)
  Receive Date: 20241203
  Receipt Date: 20241203
  Transmission Date: 20250115
  Serious: Yes (Hospitalization)
  Sender: ABBVIE
  Company Number: AR-ABBVIE-6029356

PATIENT
  Age: 64 Year
  Sex: Female

DRUGS (2)
  1. RINVOQ [Suspect]
     Active Substance: UPADACITINIB
     Indication: Rheumatoid arthritis
     Dosage: FORM STRENGTH 15 MG
     Route: 048
     Dates: start: 20221021, end: 20241112
  2. CALCIUM [Suspect]
     Active Substance: CALCIUM
     Indication: Osteoporosis
     Dosage: FREQUENCY TEXT: UNKNOWN, START DATE TEXT: UNKNOWN
     Route: 065

REACTIONS (2)
  - Diarrhoea haemorrhagic [Not Recovered/Not Resolved]
  - Osteoporosis [Not Recovered/Not Resolved]

NARRATIVE: CASE EVENT DATE: 20241101
